FAERS Safety Report 10440948 (Version 1)
Quarter: 2014Q3

REPORT INFORMATION
  Report Type: Spontaneous
  Country: US (occurrence: None)
  Receive Date: 20140905
  Receipt Date: 20140905
  Transmission Date: 20150326
  Serious: No
  Sender: FDA-Public Use
  Company Number: None

PATIENT
  Age: 27 Year
  Sex: Female
  Weight: 97.07 kg

DRUGS (1)
  1. MEDROXYPROGESTERONE DEPO SHOT [Suspect]
     Active Substance: MEDROXYPROGESTERONE
     Indication: PRODUCT USED FOR UNKNOWN INDICATION
     Dosage: 3 MONTHS INTO THE MUSCLE
     Route: 030

REACTIONS (3)
  - Vaginal disorder [None]
  - Unevaluable event [None]
  - Vulvovaginal discomfort [None]
